FAERS Safety Report 9046374 (Version 1)
Quarter: 2013Q1

REPORT INFORMATION
  Report Type: Spontaneous
  Country: EC (occurrence: EC)
  Receive Date: 20130201
  Receipt Date: 20130201
  Transmission Date: 20140127
  Serious: Yes (Death, Other)
  Sender: FDA-Public Use
  Company Number: PHHY2013EC009192

PATIENT
  Sex: Female

DRUGS (2)
  1. TEGRETOL 400 LC [Suspect]
     Dosage: 400 MG, QD
     Route: 048
     Dates: start: 20120123
  2. EXFORGE HCT [Suspect]
     Dosage: 1 DF (VALS 160MG/HYDR 12.5 MG), QD
     Route: 048
     Dates: start: 20120206

REACTIONS (2)
  - Death [Fatal]
  - Lung disorder [Unknown]
